FAERS Safety Report 9303459 (Version 1)
Quarter: 2013Q2

REPORT INFORMATION
  Report Type: Spontaneous
  Country: US (occurrence: US)
  Receive Date: 20130522
  Receipt Date: 20130522
  Transmission Date: 20140414
  Serious: Yes (Other)
  Sender: FDA-Public Use
  Company Number: US-JNJFOC-20130509721

PATIENT
  Age: 50 Year
  Sex: Male

DRUGS (6)
  1. REMICADE [Suspect]
     Indication: CROHN^S DISEASE
     Dosage: 5 MG/KG
     Route: 042
     Dates: start: 20130222
  2. REMICADE [Suspect]
     Indication: CROHN^S DISEASE
     Route: 042
     Dates: start: 20130405, end: 20130405
  3. NORVASC [Concomitant]
     Route: 065
  4. METOPROLOL [Concomitant]
     Route: 065
  5. HCTZ [Concomitant]
     Route: 065
  6. METHOTREXATE [Concomitant]
     Route: 048

REACTIONS (1)
  - Pemphigoid [Not Recovered/Not Resolved]
